FAERS Safety Report 4869570-3 (Version None)
Quarter: 2005Q4

REPORT INFORMATION
  Report Type: 
  Country: None (occurrence: None)
  Receive Date: 20051227
  Receipt Date: 20051220
  Transmission Date: 20060501
  Serious: Yes (Other)
  Sender: FDA-Public Use
  Company Number: HQWYE493310NOV05

PATIENT
  Age: 68 Year
  Sex: Female

DRUGS (1)
  1. MYLOTARG [Suspect]
     Indication: ACUTE MYELOID LEUKAEMIA RECURRENT
     Dosage: SEE IMAGE

REACTIONS (7)
  - ASCITES [None]
  - BUDD-CHIARI SYNDROME [None]
  - DIARRHOEA [None]
  - FEBRILE NEUTROPENIA [None]
  - HEPATOMEGALY [None]
  - LOWER GASTROINTESTINAL HAEMORRHAGE [None]
  - RESPIRATORY TRACT INFECTION FUNGAL [None]
